FAERS Safety Report 11618532 (Version 1)
Quarter: 2015Q4

REPORT INFORMATION
  Report Type: Spontaneous
  Country: US (occurrence: US)
  Receive Date: 20151012
  Receipt Date: 20151012
  Transmission Date: 20160304
  Serious: No
  Sender: FDA-Public Use
  Company Number: US-TEVA-512094USA

PATIENT
  Sex: Female

DRUGS (1)
  1. SPRINTEC [Suspect]
     Active Substance: ETHINYL ESTRADIOL\NORGESTIMATE
     Dosage: NORGESTIMATE AND ETHINYL ESTRADIOL 0.18 MG/0.035 MG
     Route: 065

REACTIONS (5)
  - Inappropriate schedule of drug administration [Unknown]
  - Dizziness [Unknown]
  - Headache [Unknown]
  - Breast tenderness [Unknown]
  - Nausea [Unknown]
